FAERS Safety Report 18665164 (Version 1)
Quarter: 2020Q4

REPORT INFORMATION
  Report Type: Spontaneous
  Country: CZ (occurrence: CZ)
  Receive Date: 20201225
  Receipt Date: 20201225
  Transmission Date: 20210114
  Serious: Yes (Hospitalization, Other)
  Sender: FDA-Public Use
  Company Number: CZ-ALKEM LABORATORIES LIMITED-CZ-ALKEM-2020-02126

PATIENT
  Age: 67 Year
  Sex: Female

DRUGS (10)
  1. MYCOPHENOLATE MOFETIL. [Suspect]
     Active Substance: MYCOPHENOLATE MOFETIL
     Indication: IMMUNOSUPPRESSION
  2. NIVOLUMAB [Concomitant]
     Active Substance: NIVOLUMAB
     Indication: MALIGNANT MELANOMA
     Dosage: UNK (7 PER CYCLE)
     Route: 065
     Dates: start: 201903, end: 201907
  3. URSODEOXYCHOLIC ACID [Concomitant]
     Active Substance: URSODIOL
     Indication: SUPPORTIVE CARE
     Dosage: UNK
     Route: 065
     Dates: start: 201906
  4. PARALEN [Concomitant]
     Indication: HEADACHE
     Dosage: UNK (AS NECESSARY)
     Route: 065
     Dates: start: 201906
  5. METHYLPREDNISOLONE. [Suspect]
     Active Substance: METHYLPREDNISOLONE
     Indication: HEPATITIS
     Dosage: 2 MILLIGRAM/KILOGRAM, QD
     Route: 042
     Dates: start: 201906
  6. VITAMIN K [Concomitant]
     Active Substance: PHYTONADIONE
     Indication: SUPPORTIVE CARE
     Dosage: UNK
     Route: 065
     Dates: start: 201907
  7. TACROLIMUS. [Suspect]
     Active Substance: TACROLIMUS
     Indication: IMMUNOSUPPRESSION
     Dosage: 8 MILLIGRAM, QD
     Route: 065
     Dates: start: 201907
  8. SULFAMETHOXAZOLE, TRIMETHOPRIM [Concomitant]
     Active Substance: SULFAMETHOXAZOLE\TRIMETHOPRIM
     Indication: PROPHYLAXIS
     Dosage: UNK
     Route: 065
     Dates: start: 201907
  9. MYCOPHENOLATE MOFETIL. [Suspect]
     Active Substance: MYCOPHENOLATE MOFETIL
     Indication: HEPATITIS
     Dosage: 500 MILLIGRAM, Q12H
     Route: 065
     Dates: start: 201906
  10. TACROLIMUS. [Suspect]
     Active Substance: TACROLIMUS
     Indication: HEPATITIS

REACTIONS (2)
  - Cytomegalovirus viraemia [Unknown]
  - Infection [Unknown]

NARRATIVE: CASE EVENT DATE: 2019
